FAERS Safety Report 20914613 (Version 2)
Quarter: 2022Q3

REPORT INFORMATION
  Report Type: Spontaneous
  Country: US (occurrence: US)
  Receive Date: 20220604
  Receipt Date: 20220716
  Transmission Date: 20221027
  Serious: No
  Sender: FDA-Public Use
  Company Number: US-SA-SAC20220523000911

PATIENT
  Age: 32 Year
  Sex: Male

DRUGS (1)
  1. LANTUS [Suspect]
     Active Substance: INSULIN GLARGINE
     Dosage: UNK

REACTIONS (2)
  - Burning sensation [Unknown]
  - Product odour abnormal [Unknown]
